FAERS Safety Report 13268956 (Version 2)
Quarter: 2017Q2

REPORT INFORMATION
  Report Type: Spontaneous
  Country: US (occurrence: US)
  Receive Date: 20170224
  Receipt Date: 20170405
  Transmission Date: 20170830
  Serious: Yes (Hospitalization, Other)
  Sender: FDA-Public Use
  Company Number: US-SAOL THERAPEUTICS-2017SAO00366

PATIENT
  Sex: Male

DRUGS (1)
  1. LIORESAL [Suspect]
     Active Substance: BACLOFEN
     Dosage: 550 ?G, \DAY
     Route: 037

REACTIONS (3)
  - Drug withdrawal syndrome [Unknown]
  - Device malfunction [Unknown]
  - Endotracheal intubation [Not Recovered/Not Resolved]
